FAERS Safety Report 26112276 (Version 1)
Quarter: 2025Q4

REPORT INFORMATION
  Report Type: Spontaneous
  Country: US (occurrence: None)
  Receive Date: 20251202
  Receipt Date: 20251202
  Transmission Date: 20260117
  Serious: Yes (Hospitalization)
  Sender: FDA-CTU
  Company Number: None

PATIENT
  Age: 59 Year
  Sex: Male
  Weight: 104 kg

DRUGS (4)
  1. BLEOMYCIN [Suspect]
     Active Substance: BLEOMYCIN SULFATE
     Dates: end: 20251111
  2. DACARBAZINE [Suspect]
     Active Substance: DACARBAZINE
     Dates: end: 20251111
  3. DOXORUBICIN HYDROCHLORIDE [Suspect]
     Active Substance: DOXORUBICIN HYDROCHLORIDE
     Dates: end: 20251111
  4. VINBLASTINE SULFATE [Suspect]
     Active Substance: VINBLASTINE SULFATE
     Dates: end: 20251111

REACTIONS (9)
  - Unresponsive to stimuli [None]
  - Sepsis [None]
  - Encephalopathy [None]
  - Febrile neutropenia [None]
  - Pancytopenia [None]
  - Lactic acidosis [None]
  - Acute kidney injury [None]
  - Hypertransaminasaemia [None]
  - Pneumonia [None]

NARRATIVE: CASE EVENT DATE: 20251120
